FAERS Safety Report 20873912 (Version 1)
Quarter: 2022Q2

REPORT INFORMATION
  Report Type: Report from Study
  Country: BR (occurrence: BR)
  Receive Date: 20220525
  Receipt Date: 20220525
  Transmission Date: 20220721
  Serious: Yes (Hospitalization)
  Sender: FDA-Public Use
  Company Number: BR-BIOGEN-2022BI01125072

PATIENT
  Sex: Female
  Weight: 51 kg

DRUGS (4)
  1. TYSABRI [Suspect]
     Active Substance: NATALIZUMAB
     Indication: Multiple sclerosis
     Route: 042
     Dates: start: 20190410
  2. TYSABRI [Suspect]
     Active Substance: NATALIZUMAB
     Route: 042
     Dates: start: 202109
  3. REVOLADE (eltrombopag) [Concomitant]
     Indication: Immune thrombocytopenia
     Route: 048
     Dates: start: 2013
  4. Oscal (CALCIUM, VITAMIN D) [Concomitant]
     Indication: Osteoporosis
     Route: 048
     Dates: start: 2017

REACTIONS (10)
  - Multiple sclerosis relapse [Not Recovered/Not Resolved]
  - Prescribed underdose [Not Recovered/Not Resolved]
  - Hypokinesia [Not Recovered/Not Resolved]
  - Musculoskeletal disorder [Not Recovered/Not Resolved]
  - Mobility decreased [Unknown]
  - Musculoskeletal stiffness [Unknown]
  - Urinary incontinence [Not Recovered/Not Resolved]
  - Bladder disorder [Not Recovered/Not Resolved]
  - Urine odour abnormal [Not Recovered/Not Resolved]
  - Chromaturia [Not Recovered/Not Resolved]

NARRATIVE: CASE EVENT DATE: 20200101
